FAERS Safety Report 8114582-X (Version None)
Quarter: 2012Q1

REPORT INFORMATION
  Report Type: 
  Country: None (occurrence: None)
  Receive Date: 20120206
  Receipt Date: 20120131
  Transmission Date: 20120608
  Serious: No
  Sender: FDA-Public Use
  Company Number: US-PFIZER INC-2012026582

PATIENT
  Sex: Female
  Weight: 90.703 kg

DRUGS (5)
  1. NEURONTIN [Suspect]
     Dosage: 300 MG, 2X/DAY
     Route: 048
  2. NEURONTIN [Suspect]
     Indication: HEADACHE
     Dosage: 300 MG, 1X/DAY
     Route: 048
     Dates: start: 20100101
  3. CYMBALTA [Concomitant]
     Indication: DEPRESSION
     Dosage: UNK
  4. NEURONTIN [Suspect]
     Dosage: 300 MG, 3X/DAY
     Route: 048
     Dates: end: 20120101
  5. XANAX [Concomitant]
     Indication: DEPRESSION
     Dosage: UNK

REACTIONS (1)
  - MALAISE [None]
